FAERS Safety Report 6749006-8 (Version None)
Quarter: 2010Q2

REPORT INFORMATION
  Report Type: 
  Country: None (occurrence: None)
  Receive Date: 20100601
  Receipt Date: 20100517
  Transmission Date: 20101027
  Serious: Yes (Other)
  Sender: FDA-Public Use
  Company Number: US-SANOFI-AVENTIS-2010SA029306

PATIENT
  Age: 65 Year
  Sex: Female

DRUGS (2)
  1. AMBIEN CR [Suspect]
     Indication: SLEEP DISORDER
     Route: 048
     Dates: end: 20100501
  2. ZOLPIDEM TARTRATE [Suspect]
     Indication: SLEEP DISORDER
     Route: 048
     Dates: start: 20100501, end: 20100501

REACTIONS (4)
  - CATARACT [None]
  - DRUG INEFFECTIVE [None]
  - FEELING ABNORMAL [None]
  - RETINAL DISORDER [None]
